FAERS Safety Report 5734617-9 (Version None)
Quarter: 2008Q2

REPORT INFORMATION
  Report Type: 
  Country: None (occurrence: None)
  Receive Date: 20080512
  Receipt Date: 20080506
  Transmission Date: 20081010
  Serious: Yes (Other)
  Sender: FDA-Public Use
  Company Number: PHHY2008BR07268

PATIENT
  Age: 74 Year
  Sex: Female
  Weight: 94 kg

DRUGS (1)
  1. DIOVAN HCT [Suspect]
     Indication: HYPERTENSION
     Dosage: 80/12.5 MG/DAY
     Route: 048

REACTIONS (7)
  - FALL [None]
  - HYSTERECTOMY [None]
  - OOPHORECTOMY [None]
  - SURGERY [None]
  - UPPER LIMB FRACTURE [None]
  - UTERINE CANCER [None]
  - WRIST FRACTURE [None]
